FAERS Safety Report 8923536 (Version 2)
Quarter: 2012Q4

REPORT INFORMATION
  Report Type: 
  Country: JP (occurrence: JP)
  Receive Date: 20121124
  Receipt Date: 20121206
  Transmission Date: 20130627
  Serious: Yes (Other)
  Sender: FDA-Public Use
  Company Number: JP-009507513-1211JPN009493

PATIENT
  Age: 64 Year
  Sex: Male
  Weight: 63 kg

DRUGS (6)
  1. PEGINTRON [Suspect]
     Indication: CHRONIC HEPATITIS C
     Dosage: 1.5 Microgram per kilogram, qw, injection
     Route: 058
     Dates: start: 20120308, end: 20120313
  2. REBETOL [Suspect]
     Indication: CHRONIC HEPATITIS C
     Dosage: 800 mg, qd, divided dose frequency unknown
     Route: 048
     Dates: start: 20120308, end: 20120313
  3. TELAVIC [Suspect]
     Indication: CHRONIC HEPATITIS C
     Dosage: 2250 mg, qd, divided dose frequency unknown
     Route: 048
     Dates: start: 20120308, end: 20120313
  4. NEO-MINOPHAGEN C [Concomitant]
     Indication: CHRONIC HEPATITIS C
     Dosage: 40 ml, qd, injection, IV unspecified, divided dose frequency unknown
     Route: 042
     Dates: end: 20120308
  5. MICARDIS [Concomitant]
     Indication: HYPERTENSION
     Dosage: 40 mg, qd, divided dose frequency unknown
     Route: 048
     Dates: end: 20120313
  6. ADALAT CR [Concomitant]
     Indication: HYPERTENSION
     Dosage: 20 mg, qd, divided dose frequency unknown
     Route: 048

REACTIONS (2)
  - Renal failure [Unknown]
  - Blood creatinine increased [Recovered/Resolved]
